FAERS Safety Report 24957758 (Version 1)
Quarter: 2025Q1

REPORT INFORMATION
  Report Type: Spontaneous
  Country: CN (occurrence: CN)
  Receive Date: 20250212
  Receipt Date: 20250212
  Transmission Date: 20250409
  Serious: Yes (Other)
  Sender: LEADING PHARMA
  Company Number: CN-LEADINGPHARMA-CN-2025LEALIT00024

PATIENT
  Age: 72 Year
  Sex: Male

DRUGS (2)
  1. LIDOCAINE [Suspect]
     Active Substance: LIDOCAINE
     Indication: Local anaesthesia
     Route: 065
     Dates: start: 20240505
  2. TETANUS ANTITOXIN [Suspect]
     Active Substance: TETANUS ANTITOXIN
     Indication: Product used for unknown indication
     Route: 065

REACTIONS (2)
  - Anaphylactic shock [Recovered/Resolved]
  - Drug interaction [Unknown]
